FAERS Safety Report 20827434 (Version 1)
Quarter: 2022Q2

REPORT INFORMATION
  Report Type: Spontaneous
  Country: SE (occurrence: SE)
  Receive Date: 20220513
  Receipt Date: 20220513
  Transmission Date: 20220721
  Serious: Yes (Disabling)
  Sender: FDA-Public Use
  Company Number: None

PATIENT
  Age: 70 Year
  Sex: Male

DRUGS (1)
  1. BAVENCIO [Suspect]
     Active Substance: AVELUMAB
     Indication: Neuroendocrine carcinoma of the skin
     Route: 042
     Dates: start: 20211004

REACTIONS (2)
  - Hyposmia [Not Recovered/Not Resolved]
  - Hypogeusia [Not Recovered/Not Resolved]

NARRATIVE: CASE EVENT DATE: 20220101
